FAERS Safety Report 18550986 (Version 1)
Quarter: 2020Q4

REPORT INFORMATION
  Report Type: Spontaneous
  Country: US (occurrence: US)
  Receive Date: 20201126
  Receipt Date: 20201126
  Transmission Date: 20210114
  Serious: Yes (Death, Other)
  Sender: FDA-Public Use
  Company Number: US-PURDUE-USA-2020-0178296

PATIENT
  Age: 52 Year
  Sex: Male

DRUGS (5)
  1. FIORINAL WITH CODEINE [Suspect]
     Active Substance: ASPIRIN\BUTALBITAL\CAFFEINE\CODEINE PHOSPHATE
     Indication: PAIN
     Dosage: UNK, Q4- 6H PRN
     Route: 048
  2. ENDOCET [Suspect]
     Active Substance: ACETAMINOPHEN\OXYCODONE HYDROCHLORIDE
     Indication: PAIN
     Dosage: UNK, UNK
     Route: 048
  3. OXYCONTIN [Suspect]
     Active Substance: OXYCODONE HYDROCHLORIDE
     Indication: PAIN
     Dosage: UNK, UNK
     Route: 048
  4. ROXICET [Suspect]
     Active Substance: ACETAMINOPHEN\OXYCODONE HYDROCHLORIDE
     Indication: PAIN
     Dosage: UNK
     Route: 048
  5. PERCOCET                           /00446701/ [Suspect]
     Active Substance: ACETAMINOPHEN\OXYCODONE HYDROCHLORIDE\OXYCODONE TEREPHTHALATE
     Indication: PAIN
     Dosage: UNK, UNK
     Route: 048

REACTIONS (4)
  - Death [Fatal]
  - Drug dependence [Unknown]
  - Coronary artery disease [Fatal]
  - Mental impairment [Unknown]

NARRATIVE: CASE EVENT DATE: 20120817
